FAERS Safety Report 8017993-6 (Version None)
Quarter: 2012Q1

REPORT INFORMATION
  Report Type: 
  Country: None (occurrence: None)
  Receive Date: 20120103
  Receipt Date: 20111220
  Transmission Date: 20120608
  Serious: Yes (Hospitalization)
  Sender: FDA-Public Use
  Company Number: HU-JNJFOC-20111009088

PATIENT
  Age: 34 Year
  Sex: Male
  Weight: 76 kg

DRUGS (7)
  1. GOLIMUMAB [Suspect]
     Indication: COLITIS ULCERATIVE
     Route: 058
     Dates: start: 20080925
  2. AZATHIOPRINE [Concomitant]
     Indication: COLITIS ULCERATIVE
     Route: 048
     Dates: start: 20100401
  3. LANSOPRAZOLE [Concomitant]
     Route: 048
     Dates: start: 20091001
  4. GOLIMUMAB [Suspect]
     Route: 058
     Dates: start: 20080812
  5. MESALAMINE [Concomitant]
     Indication: COLITIS ULCERATIVE
     Dates: start: 20110101
  6. BUDESONIDE [Concomitant]
     Indication: COLITIS ULCERATIVE
     Dates: start: 20110310
  7. PENTASA [Concomitant]
     Route: 048
     Dates: start: 20080305

REACTIONS (1)
  - NEPHROLITHIASIS [None]
